FAERS Safety Report 7110950-3 (Version None)
Quarter: 2010Q4

REPORT INFORMATION
  Report Type: 
  Country: None (occurrence: None)
  Receive Date: 20101118
  Receipt Date: 20091009
  Transmission Date: 20110411
  Serious: No
  Sender: FDA-Public Use
  Company Number: US-TEVA-211814USA

PATIENT
  Sex: Female

DRUGS (2)
  1. ALBUTEROL SULFATE AUTOHALER [Suspect]
  2. SERETIDE [Suspect]

REACTIONS (1)
  - DYSPHONIA [None]
